FAERS Safety Report 6426510-3 (Version None)
Quarter: 2009Q4

REPORT INFORMATION
  Report Type: 
  Country: None (occurrence: None)
  Receive Date: 20091030
  Receipt Date: 20091020
  Transmission Date: 20100525
  Serious: Yes (Hospitalization, Other)
  Sender: FDA-Public Use
  Company Number: 415004

PATIENT
  Age: 37 Year
  Sex: Male

DRUGS (12)
  1. HEPARIN SODIUM [Suspect]
     Indication: PROPHYLAXIS
     Dosage: 1 DOSAGE FORM, SUBCUTANEOUS
     Route: 058
     Dates: start: 20090328
  2. MIDAZOLAM HYDROCHLORIDE [Suspect]
     Indication: SEDATION
     Dosage: 9 MG, 1 HOUR, INTRAVENOUS
     Route: 042
     Dates: start: 20090328
  3. PROPOFOL [Suspect]
     Indication: SEDATION
     Dosage: 100 MG, 1 HOUR; INTRAVENOUS
     Route: 042
     Dates: start: 20090328
  4. FENTANYL-100 [Suspect]
     Indication: ENDOTRACHEAL INTUBATION
     Dosage: 1 MG, 1 HOUR; INTRAVENOUS
     Route: 042
     Dates: start: 20090328, end: 20090406
  5. CEFOTAXIME [Suspect]
     Indication: PNEUMONIA ASPIRATION
     Dosage: 6U,
     Dates: start: 20090401, end: 20090411
  6. CISATRACURIUM [Suspect]
     Indication: ENDOTRACHEAL INTUBATION
     Dosage: 18MG, 1 HOUR; INTRAVENOUS
     Route: 042
     Dates: start: 20090328
  7. CLONAZEPAM [Suspect]
     Indication: SEDATION
     Dosage: 30 MG, 4 DAY;
     Dates: start: 20090329
  8. PHENYTOIN [Suspect]
     Indication: PROPHYLAXIS
     Dosage: 300 MG, 4 DAY; INTRAVENOUS
     Route: 042
     Dates: start: 20090328, end: 20090406
  9. PRIMPERAN TAB [Suspect]
     Indication: GASTROINTESTINAL MOTILITY DISORDER
     Dosage: 10 MG, 3 DAY;
     Dates: start: 20090402
  10. AUGMENTIN [Suspect]
     Indication: PNEUMONIA ASPIRATION
     Dosage: 6 Q, 4 DAY; INTRAVENOUS
     Route: 042
     Dates: start: 20090328, end: 20090401
  11. MEROPENEM [Concomitant]
  12. VANCOMYCIN [Concomitant]

REACTIONS (2)
  - GASTROINTESTINAL MOTILITY DISORDER [None]
  - HYPERTRANSAMINASAEMIA [None]
